FAERS Safety Report 4345724-X (Version None)
Quarter: 2004Q2

REPORT INFORMATION
  Report Type: 
  Country: None (occurrence: None)
  Receive Date: 20040421
  Receipt Date: 20040409
  Transmission Date: 20050107
  Serious: No
  Sender: FDA-Public Use
  Company Number: 04P-056-0257577-00

PATIENT
  Age: 32 Year
  Sex: Female

DRUGS (4)
  1. DEPAKENE [Suspect]
     Indication: GRAND MAL CONVULSION
     Dosage: 1000 MG, 2 IN 1 D
  2. CLONAZEPAM [Concomitant]
  3. FOLIC ACID [Concomitant]
  4. HYDROXYZINE HYDROCHLORIDE [Concomitant]

REACTIONS (6)
  - COMPLICATIONS OF MATERNAL EXPOSURE TO THERAPEUTIC DRUGS [None]
  - FOETAL DISORDER [None]
  - INDUCED LABOUR [None]
  - MATERNAL DRUGS AFFECTING FOETUS [None]
  - POLYHYDRAMNIOS [None]
  - PREGNANCY [None]
